FAERS Safety Report 11250134 (Version 1)
Quarter: 2015Q3

REPORT INFORMATION
  Report Type: Spontaneous
  Country: US (occurrence: US)
  Receive Date: 20150708
  Receipt Date: 20150708
  Transmission Date: 20151125
  Serious: Yes (Other)
  Sender: FDA-Public Use
  Company Number: US-ELI_LILLY_AND_COMPANY-US200904003353

PATIENT
  Age: 30 Year
  Sex: Female
  Weight: 81.63 kg

DRUGS (7)
  1. SYMBYAX [Suspect]
     Active Substance: FLUOXETINE HYDROCHLORIDE\OLANZAPINE
     Indication: PSYCHOTIC DISORDER
     Dosage: UNK, UNK
     Dates: start: 20070315, end: 20090219
  2. ZYPREXA [Concomitant]
     Active Substance: OLANZAPINE
     Dates: end: 20070315
  3. RESTORIL [Concomitant]
     Active Substance: TEMAZEPAM
  4. SERTRALINE [Concomitant]
     Active Substance: SERTRALINE HYDROCHLORIDE
     Dates: end: 20070315
  5. DEPAKOTE [Concomitant]
     Active Substance: DIVALPROEX SODIUM
     Dates: start: 200901, end: 200902
  6. BENZTROPINE [Concomitant]
     Active Substance: BENZTROPINE
  7. RISPERDAL [Concomitant]
     Active Substance: RISPERIDONE

REACTIONS (3)
  - Weight increased [Recovering/Resolving]
  - Off label use [Recovered/Resolved]
  - Rash generalised [Unknown]

NARRATIVE: CASE EVENT DATE: 2007
